FAERS Safety Report 23333892 (Version 1)
Quarter: 2023Q4

REPORT INFORMATION
  Report Type: Spontaneous
  Country: GB (occurrence: GB)
  Receive Date: 20231223
  Receipt Date: 20231223
  Transmission Date: 20240110
  Serious: Yes (Life-Threatening, Hospitalization, Other)
  Sender: FDA-Public Use
  Company Number: GB-Accord-240197

PATIENT
  Age: 45 Year
  Weight: 98.7 kg

DRUGS (88)
  1. CARBOPLATIN [Suspect]
     Active Substance: CARBOPLATIN
     Indication: Diffuse large B-cell lymphoma stage II
     Dosage: 750 MG, 1Q3W (EVERY 3WEEKS)  (REGIMEN: 1; PHARMACEUTICAL DOSE FORM: 16)
     Route: 065
     Dates: start: 20210901
  2. CARBOPLATIN [Suspect]
     Active Substance: CARBOPLATIN
     Indication: Diffuse large B-cell lymphoma stage II
     Dosage: (REGIMEN : 1; PHARMACEUTICAL DOSE FORM: 16)
     Route: 065
  3. CARBOPLATIN [Suspect]
     Active Substance: CARBOPLATIN
     Indication: Diffuse large B-cell lymphoma stage II
     Dosage: (REGIMEN : 1; PHARMACEUTICAL DOSE FORM: 16)
     Route: 065
  4. CARBOPLATIN [Suspect]
     Active Substance: CARBOPLATIN
     Indication: Diffuse large B-cell lymphoma stage II
     Dosage: UNK (PHARMACEUTICAL DOSE FORM: 16)
     Route: 065
  5. CARBOPLATIN [Suspect]
     Active Substance: CARBOPLATIN
     Indication: Diffuse large B-cell lymphoma stage II
     Dosage: TIME INTERVAL: CYCLICAL: 5 AUC, 750MG 1Q3W
     Route: 065
     Dates: start: 20210901, end: 20210901
  6. CARBOPLATIN [Suspect]
     Active Substance: CARBOPLATIN
     Indication: Diffuse large B-cell lymphoma stage II
     Dosage: 5 AUC
     Route: 065
     Dates: start: 20121006
  7. FRAGMIN [Suspect]
     Active Substance: DALTEPARIN SODIUM
     Indication: Prophylaxis
     Dosage: 5000 UNITS, QD (REGIMEN: 1; PHARMACEUTICAL DOSE FORM: 231)
     Route: 065
     Dates: start: 202107, end: 20210908
  8. FRAGMIN [Suspect]
     Active Substance: DALTEPARIN SODIUM
     Indication: Prophylaxis
     Dosage: 5000 IU, 1X/DAY (DOSE FORM: 231)
     Route: 065
     Dates: start: 202107, end: 20210908
  9. FRAGMIN [Suspect]
     Active Substance: DALTEPARIN SODIUM
     Indication: Prophylaxis
     Dosage: (REGIMEN: 1; PHARMACEUTICAL DOSE FORM: 231)
     Route: 065
     Dates: start: 202107, end: 20210908
  10. FRAGMIN [Suspect]
     Active Substance: DALTEPARIN SODIUM
     Indication: Prophylaxis
     Dosage: 25 IU, QD (5000 IU, 1X/DAY)
     Route: 065
     Dates: start: 202107, end: 20210908
  11. FRAGMIN [Suspect]
     Active Substance: DALTEPARIN SODIUM
     Indication: Prophylaxis
     Dosage: UNK UNK, QD (5000 UNITS) (PHARMACEUTICAL DOSE FORM: 231)
     Route: 065
     Dates: start: 202107, end: 20210908
  12. CHLORPHENIRAMINE MALEATE [Concomitant]
     Active Substance: CHLORPHENIRAMINE MALEATE
     Indication: Premedication
     Dates: start: 20210901, end: 20210901
  13. CHLORPHENIRAMINE MALEATE [Concomitant]
     Active Substance: CHLORPHENIRAMINE MALEATE
     Indication: Premedication
     Dates: start: 20210908, end: 20210908
  14. CHLORPHENIRAMINE MALEATE [Concomitant]
     Active Substance: CHLORPHENIRAMINE MALEATE
     Indication: Premedication
     Dates: start: 20210831, end: 20210831
  15. CHLORPHENIRAMINE MALEATE [Concomitant]
     Active Substance: CHLORPHENIRAMINE MALEATE
     Indication: Premedication
     Dates: start: 20210908, end: 20210922
  16. ACETAMINOPHEN [Concomitant]
     Active Substance: ACETAMINOPHEN
     Indication: Premedication
     Dosage: 1 G
     Route: 065
     Dates: start: 20210831, end: 20210908
  17. ACETAMINOPHEN [Concomitant]
     Active Substance: ACETAMINOPHEN
     Indication: Premedication
     Dates: start: 20210908, end: 20210922
  18. ACETAMINOPHEN [Concomitant]
     Active Substance: ACETAMINOPHEN
     Indication: Premedication
     Dates: start: 20210901
  19. ACETAMINOPHEN [Concomitant]
     Active Substance: ACETAMINOPHEN
     Indication: Premedication
     Dosage: UNK
     Dates: start: 20210901
  20. ACETAMINOPHEN [Concomitant]
     Active Substance: ACETAMINOPHEN
     Indication: Premedication
     Dosage: UNK
     Dates: start: 20210908
  21. ACETAMINOPHEN [Concomitant]
     Active Substance: ACETAMINOPHEN
     Indication: Premedication
     Dosage: 1 G
     Dates: start: 20210908, end: 20210922
  22. ACETAMINOPHEN [Concomitant]
     Active Substance: ACETAMINOPHEN
     Indication: Premedication
     Dates: start: 20210908, end: 20210908
  23. ACETAMINOPHEN [Concomitant]
     Active Substance: ACETAMINOPHEN
     Indication: Premedication
     Dates: start: 20210831, end: 20210908
  24. FOLIC ACID [Concomitant]
     Active Substance: FOLIC ACID
     Indication: Product used for unknown indication
     Dates: start: 202104
  25. EPCORITAMAB [Suspect]
     Active Substance: EPCORITAMAB
     Indication: Diffuse large B-cell lymphoma
     Dosage: 48 MF, FULL DOSE
     Route: 065
     Dates: start: 20210922
  26. EPCORITAMAB [Suspect]
     Active Substance: EPCORITAMAB
     Indication: Diffuse large B-cell lymphoma
     Dosage: INTERMEDIATE DOSE 0.8 MG, SINGLE (PHARMACEUTICAL DOSE FORM: 15)
     Route: 065
     Dates: start: 20210901, end: 20210901
  27. EPCORITAMAB [Suspect]
     Active Substance: EPCORITAMAB
     Indication: Diffuse large B-cell lymphoma
     Dosage: 0.8 MG, SINGLE (FULL DOSE) (PHARMACEUTICAL DOSE FORM: 15)
     Route: 065
     Dates: start: 20210922
  28. EPCORITAMAB [Suspect]
     Active Substance: EPCORITAMAB
     Indication: Diffuse large B-cell lymphoma
     Dosage: C2D15
     Route: 065
     Dates: start: 20211013
  29. EPCORITAMAB [Suspect]
     Active Substance: EPCORITAMAB
     Indication: Diffuse large B-cell lymphoma
     Dosage: 0.16 MG, SINGLE (REGIMEN: 1; PHARMACEUTICAL DOSE FORM: 15)
     Route: 065
     Dates: start: 20210901, end: 20210901
  30. EPCORITAMAB [Suspect]
     Active Substance: EPCORITAMAB
     Indication: Diffuse large B-cell lymphoma
     Dosage: FULL DOSE 0.8 MG, SINGLE (DOSE FORM: 231)
     Route: 065
     Dates: start: 20210922
  31. EPCORITAMAB [Suspect]
     Active Substance: EPCORITAMAB
     Indication: Diffuse large B-cell lymphoma
     Dosage: PRIMING DOSE 0.16 MG, SINGLE (PHARMACEUTICAL DOSE FORM: 231)
     Route: 065
     Dates: start: 20210901, end: 20210901
  32. EPCORITAMAB [Suspect]
     Active Substance: EPCORITAMAB
     Indication: Diffuse large B-cell lymphoma
     Dosage: UNK, (PHARMACEUTICAL DOSAGE FORM: 15; CUMULATIVE DOSE: 0.96 MG)
     Route: 065
  33. EPCORITAMAB [Suspect]
     Active Substance: EPCORITAMAB
     Indication: Diffuse large B-cell lymphoma
     Dosage: 0.16 MILLIGRAM, SINGLE
     Route: 065
     Dates: start: 20210901, end: 20210901
  34. EPCORITAMAB [Suspect]
     Active Substance: EPCORITAMAB
     Indication: Diffuse large B-cell lymphoma
     Dosage: PRIMING DOSE 0.16MG, SINGLE (PRIMING DOSE) (PHARMACEUTICAL DOSE FORM: 15)
     Route: 065
     Dates: start: 20210901, end: 20210901
  35. EPCORITAMAB [Suspect]
     Active Substance: EPCORITAMAB
     Indication: Diffuse large B-cell lymphoma
     Dosage: 0.8 MILLIGRAM, SINGLE
     Route: 065
     Dates: start: 20210908, end: 20210908
  36. EPCORITAMAB [Suspect]
     Active Substance: EPCORITAMAB
     Indication: Diffuse large B-cell lymphoma
     Dosage: 0.8 MG, SINGLE (PRIMING DOSE) (PHARMACEUTICAL DOSE FORM: 15)
     Route: 065
     Dates: start: 20210901, end: 20210901
  37. DALTEPARIN [Suspect]
     Active Substance: DALTEPARIN
     Indication: Prophylaxis
     Dosage: 5000 UNITS, QD
     Route: 065
     Dates: start: 202107, end: 20210908
  38. FILGRASTIM [Concomitant]
     Active Substance: FILGRASTIM
     Indication: Product used for unknown indication
     Dates: start: 202104
  39. METOCLOPRAMIDE [Concomitant]
     Active Substance: METOCLOPRAMIDE
     Indication: Product used for unknown indication
     Dates: start: 20211011
  40. RITUXIMAB [Suspect]
     Active Substance: RITUXIMAB
     Indication: Diffuse large B-cell lymphoma
     Dosage: UNK(PHARMACEUTICAL DOSE FORM: 16)
     Route: 065
     Dates: start: 201912, end: 202004
  41. RITUXIMAB [Suspect]
     Active Substance: RITUXIMAB
     Indication: Diffuse large B-cell lymphoma
     Dosage: 9 MG/M2, Q3W (375 MG/M2, EVERY 3 WEEKS) (PHARMACEUTICAL DOSE FORM: 16)
     Route: 065
     Dates: start: 20210831
  42. RITUXIMAB [Suspect]
     Active Substance: RITUXIMAB
     Indication: Diffuse large B-cell lymphoma
     Dosage: 375 MG/M2, EVERY 3 WEEKS (PHARMACEUTICAL DOSE FORM: 230)
     Route: 065
     Dates: start: 20210831
  43. RITUXIMAB [Suspect]
     Active Substance: RITUXIMAB
     Indication: Diffuse large B-cell lymphoma
     Dosage: 375 MG/M2, 1Q3W (PHARMACEUTICAL DOSE FORM: 16)
     Route: 065
     Dates: start: 20210831
  44. RITUXIMAB [Suspect]
     Active Substance: RITUXIMAB
     Indication: Diffuse large B-cell lymphoma
     Dosage: UNK, (REGIMEN : 1; PHARMACEUTICAL DOSE FORM: 16)
     Route: 065
  45. RITUXIMAB [Suspect]
     Active Substance: RITUXIMAB
     Indication: Diffuse large B-cell lymphoma
     Dosage: UNK
     Route: 065
     Dates: start: 202008, end: 202009
  46. RITUXIMAB [Suspect]
     Active Substance: RITUXIMAB
     Indication: Diffuse large B-cell lymphoma
     Dosage: 1Q3W
     Route: 065
     Dates: start: 20210831, end: 20210831
  47. RITUXIMAB [Suspect]
     Active Substance: RITUXIMAB
     Indication: Diffuse large B-cell lymphoma
     Dosage: 1Q3W
     Route: 065
     Dates: start: 20211006
  48. CHLORPHENIRAMINE MALEATE [Concomitant]
     Active Substance: CHLORPHENIRAMINE MALEATE
     Indication: Premedication
     Dosage: 10 MG
     Dates: start: 20210908, end: 20210908
  49. CHLORPHENIRAMINE MALEATE [Concomitant]
     Active Substance: CHLORPHENIRAMINE MALEATE
     Indication: Premedication
     Dosage: 10 MG
     Dates: start: 20210831, end: 20210831
  50. CHLORPHENIRAMINE MALEATE [Concomitant]
     Active Substance: CHLORPHENIRAMINE MALEATE
     Indication: Premedication
     Dosage: 10 MG
     Dates: start: 20210901, end: 20210901
  51. CHLORPHENIRAMINE MALEATE [Concomitant]
     Active Substance: CHLORPHENIRAMINE MALEATE
     Indication: Premedication
     Dosage: 10 MG
     Dates: start: 20210908, end: 20210922
  52. OXALIPLATIN [Suspect]
     Active Substance: OXALIPLATIN
     Indication: Diffuse large B-cell lymphoma
     Dosage: (REGIMEN : 1; PHARMACEUTICAL DOSE FORM: 16)
     Route: 065
  53. OXALIPLATIN [Suspect]
     Active Substance: OXALIPLATIN
     Indication: Diffuse large B-cell lymphoma
     Dosage: UNK (REGIMEN : 1; PHARMACEUTICAL DOSE FORM: 16)
     Route: 065
  54. OXALIPLATIN [Suspect]
     Active Substance: OXALIPLATIN
     Indication: Diffuse large B-cell lymphoma
     Dosage: UNK (DOSE FORM: 16)
     Route: 065
  55. ACYCLOVIR [Concomitant]
     Active Substance: ACYCLOVIR
     Indication: Product used for unknown indication
     Dates: start: 202103
  56. ONDANSETRON [Concomitant]
     Active Substance: ONDANSETRON
     Indication: Product used for unknown indication
     Dosage: UNK
     Dates: start: 20210901, end: 20210901
  57. ONDANSETRON [Concomitant]
     Active Substance: ONDANSETRON
     Indication: Product used for unknown indication
     Dates: start: 20210901, end: 20210901
  58. POSACONAZOLE [Concomitant]
     Active Substance: POSACONAZOLE
     Indication: Product used for unknown indication
     Dates: start: 202107
  59. DEXAMETHASONE [Suspect]
     Active Substance: DEXAMETHASONE
     Indication: Diffuse large B-cell lymphoma stage II
     Route: 065
     Dates: start: 20210908, end: 20210908
  60. DEXAMETHASONE [Suspect]
     Active Substance: DEXAMETHASONE
     Indication: Diffuse large B-cell lymphoma stage II
     Route: 065
     Dates: start: 20210902, end: 20210911
  61. DEXAMETHASONE [Suspect]
     Active Substance: DEXAMETHASONE
     Indication: Diffuse large B-cell lymphoma stage II
     Dosage: SINGLE
     Route: 065
     Dates: start: 20210922, end: 20210922
  62. DEXAMETHASONE [Suspect]
     Active Substance: DEXAMETHASONE
     Indication: Diffuse large B-cell lymphoma stage II
     Route: 065
     Dates: start: 20220914, end: 20220917
  63. DEXAMETHASONE [Suspect]
     Active Substance: DEXAMETHASONE
     Indication: Diffuse large B-cell lymphoma stage II
     Dosage: SINGLE
     Route: 065
     Dates: start: 20211008
  64. DEXAMETHASONE [Suspect]
     Active Substance: DEXAMETHASONE
     Indication: Diffuse large B-cell lymphoma stage II
     Dosage: SINGLE
     Route: 065
     Dates: start: 20210831, end: 20210831
  65. DEXAMETHASONE [Suspect]
     Active Substance: DEXAMETHASONE
     Indication: Diffuse large B-cell lymphoma stage II
     Dosage: SINGLE
     Route: 065
     Dates: start: 20210908
  66. DEXAMETHASONE [Suspect]
     Active Substance: DEXAMETHASONE
     Indication: Diffuse large B-cell lymphoma stage II
     Dosage: SINGLE
     Route: 065
     Dates: start: 20210901, end: 20210903
  67. DEXAMETHASONE [Suspect]
     Active Substance: DEXAMETHASONE
     Indication: Diffuse large B-cell lymphoma stage II
     Dosage: SINGLE
     Route: 065
     Dates: start: 20210902, end: 20210903
  68. DEXAMETHASONE [Suspect]
     Active Substance: DEXAMETHASONE
     Indication: Diffuse large B-cell lymphoma stage II
     Dosage: SINGLE
     Route: 065
     Dates: start: 20210923, end: 20210925
  69. DEXAMETHASONE [Suspect]
     Active Substance: DEXAMETHASONE
     Indication: Diffuse large B-cell lymphoma stage II
     Route: 065
     Dates: start: 20210909, end: 20210911
  70. DEXAMETHASONE [Suspect]
     Active Substance: DEXAMETHASONE
     Indication: Diffuse large B-cell lymphoma stage II
     Route: 065
     Dates: start: 20211009
  71. DEXAMETHASONE [Suspect]
     Active Substance: DEXAMETHASONE
     Indication: Diffuse large B-cell lymphoma stage II
     Dosage: 40MG, QD (PHARMACEUTICAL DOSE FORM: 169)
     Route: 065
     Dates: start: 20210902, end: 20210903
  72. DEXAMETHASONE [Suspect]
     Active Substance: DEXAMETHASONE
     Indication: Diffuse large B-cell lymphoma stage II
     Dosage: 16 MG, SINGLE (PHARMACEUTICAL DOSAGE FORM: 169)
     Route: 065
     Dates: start: 20210908, end: 20210908
  73. DEXAMETHASONE [Suspect]
     Active Substance: DEXAMETHASONE
     Indication: Diffuse large B-cell lymphoma stage II
     Dosage: 16 MG, QD (PHARMACEUTICAL DOSAGE FORM: 169)
     Route: 065
     Dates: start: 20210909, end: 20210911
  74. DEXAMETHASONE [Suspect]
     Active Substance: DEXAMETHASONE
     Indication: Diffuse large B-cell lymphoma stage II
     Dosage: 16 MG, QD (PHARMACEUTICAL DOSAGE FORM: 169)
     Route: 065
     Dates: start: 20210923, end: 20210925
  75. LANSOPRAZOLE [Concomitant]
     Active Substance: LANSOPRAZOLE
     Indication: Product used for unknown indication
     Dates: start: 202104
  76. CYTARABINE [Suspect]
     Active Substance: CYTARABINE
     Indication: Diffuse large B-cell lymphoma stage II
     Dosage: 9 MG/M2, BID (2000 MG/M2 EVERY 12 HOURS) PHARMACEUTICAL DOSE FORM: 231
     Route: 065
     Dates: start: 20210902
  77. CYTARABINE [Suspect]
     Active Substance: CYTARABINE
     Indication: Diffuse large B-cell lymphoma stage II
     Dosage: REGIMEN: 1; CUMULATIVE DOSE: 4000 MG/M2; PHARMACEUTICAL DOSAGE FORM: 231
     Route: 065
  78. CYTARABINE [Suspect]
     Active Substance: CYTARABINE
     Indication: Diffuse large B-cell lymphoma stage II
     Dosage: 2000 MG/M2 EVERY 12 HOURS (PHARMACEUTICAL DOSAGE FORM: 231)
     Route: 065
     Dates: start: 20210902
  79. CYTARABINE [Suspect]
     Active Substance: CYTARABINE
     Indication: Diffuse large B-cell lymphoma stage II
     Dosage: 2000 MG/M2 (PHARMACEUTICAL DOSE FORM: 231)
     Route: 065
     Dates: start: 20210902
  80. CYTARABINE [Suspect]
     Active Substance: CYTARABINE
     Indication: Diffuse large B-cell lymphoma stage II
     Dosage: 2000 MG/M2, BID (REGIMEN : 1; PHARMACEUTICAL DOSAGE FORM: 231)
     Route: 065
     Dates: start: 20210902
  81. CYTARABINE [Suspect]
     Active Substance: CYTARABINE
     Indication: Diffuse large B-cell lymphoma stage II
     Dosage: 2000 MG/M2, EVERY 12 HOURS (DOSE FORM: 231)
     Route: 065
     Dates: start: 20210901
  82. CYTARABINE [Suspect]
     Active Substance: CYTARABINE
     Indication: Diffuse large B-cell lymphoma stage II
     Dosage: Q12H (REGIMEN : 1; PHARMACEUTICAL DOSE FORM: 374)
     Route: 065
     Dates: start: 20210901, end: 20210901
  83. CYTARABINE [Suspect]
     Active Substance: CYTARABINE
     Indication: Diffuse large B-cell lymphoma stage II
     Dosage: 2000 MG/M2, EVERY 12 HOURS
     Route: 065
     Dates: start: 20210901
  84. CYTARABINE [Suspect]
     Active Substance: CYTARABINE
     Indication: Diffuse large B-cell lymphoma stage II
     Dosage: 1Q2H
     Route: 065
     Dates: start: 20210901, end: 20210902
  85. CYTARABINE [Suspect]
     Active Substance: CYTARABINE
     Indication: Diffuse large B-cell lymphoma stage II
     Dosage: 1Q2H
     Route: 065
     Dates: start: 20210902
  86. CYTARABINE [Suspect]
     Active Substance: CYTARABINE
     Indication: Diffuse large B-cell lymphoma stage II
     Dosage: 16 MG, SINGLE
     Route: 065
     Dates: start: 20210922, end: 20210922
  87. CYTARABINE [Suspect]
     Active Substance: CYTARABINE
     Indication: Diffuse large B-cell lymphoma stage II
     Dosage: Q12H
     Route: 065
     Dates: start: 20211006, end: 20211007
  88. FLUOXETINE [Concomitant]
     Active Substance: FLUOXETINE HYDROCHLORIDE
     Indication: Product used for unknown indication
     Dates: start: 202103

REACTIONS (6)
  - Product use issue [Unknown]
  - Cellulitis [Recovered/Resolved]
  - Thrombocytopenia [Recovered/Resolved]
  - Febrile neutropenia [Recovered/Resolved]
  - Neutropenic infection [Recovered/Resolved]
  - Disease progression [Unknown]

NARRATIVE: CASE EVENT DATE: 20210910
